FAERS Safety Report 18531154 (Version 2)
Quarter: 2020Q4

REPORT INFORMATION
  Report Type: Spontaneous
  Country: CL (occurrence: CL)
  Receive Date: 20201122
  Receipt Date: 20201214
  Transmission Date: 20210114
  Serious: Yes (Other)
  Sender: FDA-Public Use
  Company Number: NVSC2020CL311336

PATIENT
  Age: 22 Year
  Sex: Female

DRUGS (2)
  1. ACLASTA [Suspect]
     Active Substance: ZOLEDRONIC ACID
     Indication: PRODUCT USED FOR UNKNOWN INDICATION
     Dosage: 5 MG, (2 TIMES A YEAR)
     Route: 041
  2. ACLASTA [Suspect]
     Active Substance: ZOLEDRONIC ACID
     Dosage: 5 MG, (EVERY 8 MONTHS)
     Route: 041

REACTIONS (3)
  - Product prescribing error [Unknown]
  - Inappropriate schedule of product administration [Unknown]
  - Osteoporosis [Unknown]
